FAERS Safety Report 9475502 (Version 1)
Quarter: 2013Q3

REPORT INFORMATION
  Report Type: Spontaneous
  Country: US (occurrence: None)
  Receive Date: 20130822
  Receipt Date: 20130822
  Transmission Date: 20140515
  Serious: Yes (Hospitalization)
  Sender: FDA-Public Use
  Company Number: None

PATIENT
  Age: 79 Year
  Sex: Male
  Weight: 74.4 kg

DRUGS (2)
  1. FUROSEMIDE [Suspect]
     Indication: CELLULITIS
     Route: 048
     Dates: start: 20130523, end: 20130713
  2. CEPHALEXIN [Suspect]
     Indication: OEDEMA
     Route: 048
     Dates: start: 20130423, end: 20130523

REACTIONS (7)
  - Diarrhoea [None]
  - Fatigue [None]
  - Dehydration [None]
  - Anuria [None]
  - Renal failure acute [None]
  - Renal tubular necrosis [None]
  - Renal failure acute [None]
